FAERS Safety Report 6166557-8 (Version None)
Quarter: 2009Q2

REPORT INFORMATION
  Report Type: 
  Country: None (occurrence: None)
  Receive Date: 20090424
  Receipt Date: 20090410
  Transmission Date: 20091009
  Serious: Yes (Hospitalization)
  Sender: FDA-Public Use
  Company Number: FI-ROCHE-627019

PATIENT
  Sex: Male

DRUGS (4)
  1. LARIAM [Suspect]
     Indication: MALARIA PROPHYLAXIS
     Route: 048
     Dates: start: 20090116, end: 20090306
  2. COZAAR [Concomitant]
     Indication: HYPERTENSION
     Dosage: STRENGTH REPORTED AS 100MG/25MG.  DRUG REPORTED: COZAAR COMP FORTE.
     Route: 048
     Dates: start: 20070625
  3. PRIMASPAN [Concomitant]
     Indication: ANTIPLATELET THERAPY
     Route: 048
     Dates: start: 20050823
  4. SIMVASTATIN [Concomitant]
     Route: 048
     Dates: start: 20050823

REACTIONS (2)
  - CONVULSION [None]
  - LOSS OF CONSCIOUSNESS [None]
